FAERS Safety Report 7083905-5 (Version None)
Quarter: 2010Q4

REPORT INFORMATION
  Report Type: 
  Country: None (occurrence: None)
  Receive Date: 20101104
  Receipt Date: 20100325
  Transmission Date: 20110411
  Serious: No
  Sender: FDA-Public Use
  Company Number: US-ABBOTT-09P-163-0612178-00

PATIENT
  Sex: Male
  Weight: 60.836 kg

DRUGS (2)
  1. KALETRA [Suspect]
     Indication: HIV INFECTION
     Dates: start: 20091001
  2. TRUVADA [Suspect]
     Indication: HIV INFECTION
     Dosage: 200/300 MG, DAILY
     Dates: start: 20091001

REACTIONS (2)
  - NAUSEA [None]
  - PRURITUS [None]
